FAERS Safety Report 7211758-0 (Version None)
Quarter: 2011Q1

REPORT INFORMATION
  Report Type: 
  Country: None (occurrence: None)
  Receive Date: 20110105
  Receipt Date: 20101224
  Transmission Date: 20110831
  Serious: Yes (Hospitalization, Other)
  Sender: FDA-Public Use
  Company Number: JP-AMGEN-JPNSP2011000033

PATIENT

DRUGS (3)
  1. RHEUMATREX [Suspect]
     Indication: RHEUMATOID ARTHRITIS
     Dosage: 2 MG X2, FREQUENCY UNKNOWN
     Route: 048
  2. ENBREL [Suspect]
     Indication: RHEUMATOID ARTHRITIS
     Dosage: 25 MG, WEEKLY
     Route: 058
     Dates: end: 20100924
  3. ENBREL [Suspect]
     Dosage: 25 MG, 2X/WEEK
     Route: 058
     Dates: start: 20101029

REACTIONS (3)
  - HYDRONEPHROSIS [None]
  - CALCULUS URETERIC [None]
  - URETERIC STENOSIS [None]
